FAERS Safety Report 16787812 (Version 1)
Quarter: 2019Q3

REPORT INFORMATION
  Report Type: Report from Study
  Country: KR (occurrence: KR)
  Receive Date: 20190909
  Receipt Date: 20190909
  Transmission Date: 20191005
  Serious: No
  Sender: FDA-Public Use
  Company Number: KR-B.I. PHARMACEUTICALS,INC./RIDGEFIELD-2019-BI-100112

PATIENT
  Sex: Male
  Weight: 75 kg

DRUGS (7)
  1. FENOCID [Concomitant]
     Indication: DYSLIPIDAEMIA
     Dosage: FORMULATION: PILL
     Route: 048
     Dates: start: 20181024
  2. LYRICA [Concomitant]
     Active Substance: PREGABALIN
     Indication: NEUROPATHY PERIPHERAL
     Route: 048
     Dates: start: 20180718
  3. JARDIANCE [Suspect]
     Active Substance: EMPAGLIFLOZIN
     Indication: TYPE 2 DIABETES MELLITUS
     Route: 048
     Dates: start: 20190424, end: 20190716
  4. NEBILET [Concomitant]
     Active Substance: NEBIVOLOL
     Indication: HYPERTENSION
     Dosage: FORMULATION: PILL
     Route: 048
     Dates: start: 20180412
  5. DEXID [Concomitant]
     Indication: NEUROPATHY PERIPHERAL
     Dosage: FORMULATION: PILL
     Route: 048
     Dates: start: 20180412
  6. DIABEX [Concomitant]
     Active Substance: METFORMIN HYDROCHLORIDE
     Indication: TYPE 2 DIABETES MELLITUS
  7. TRESIBA [Concomitant]
     Active Substance: INSULIN DEGLUDEC
     Indication: TYPE 2 DIABETES MELLITUS
     Dosage: FORMULATION: PILL
     Route: 048
     Dates: start: 20180412

REACTIONS (1)
  - Pollakiuria [Recovered/Resolved]

NARRATIVE: CASE EVENT DATE: 2019
